FAERS Safety Report 16168924 (Version 2)
Quarter: 2019Q2

REPORT INFORMATION
  Report Type: Report from Study
  Country: US (occurrence: US)
  Receive Date: 20190408
  Receipt Date: 20190417
  Transmission Date: 20190711
  Serious: No
  Sender: FDA-Public Use
  Company Number: PHEH2019US014984

PATIENT
  Sex: Male
  Weight: 102.9 kg

DRUGS (5)
  1. AMITRIPTYLINE [Concomitant]
     Active Substance: AMITRIPTYLINE
     Indication: PRODUCT USED FOR UNKNOWN INDICATION
     Dosage: 25 MG, QD
     Route: 048
     Dates: start: 20180420
  2. ATIVAN [Suspect]
     Active Substance: LORAZEPAM
     Dosage: (AFTERNOON)
     Route: 048
  3. DOXEPIN [Concomitant]
     Active Substance: DOXEPIN
     Indication: PRODUCT USED FOR UNKNOWN INDICATION
     Dosage: 1 MG, BID
     Route: 048
     Dates: start: 20181010
  4. ENTRESTO [Suspect]
     Active Substance: SACUBITRIL\VALSARTAN
     Indication: PRODUCT USED FOR UNKNOWN INDICATION
     Dosage: UNK
     Route: 065
  5. ATIVAN [Suspect]
     Active Substance: LORAZEPAM
     Indication: PRODUCT USED FOR UNKNOWN INDICATION
     Dosage: (MORNING)
     Route: 048

REACTIONS (6)
  - Anxiety [Recovered/Resolved]
  - Ejection fraction decreased [Unknown]
  - Inappropriate schedule of product administration [Unknown]
  - Amnesia [Recovered/Resolved]
  - Feeling jittery [Unknown]
  - Feeling abnormal [Unknown]
